FAERS Safety Report 22531161 (Version 1)
Quarter: 2023Q2

REPORT INFORMATION
  Report Type: Spontaneous
  Country: CN (occurrence: CN)
  Receive Date: 20230607
  Receipt Date: 20230607
  Transmission Date: 20230722
  Serious: Yes (Hospitalization)
  Sender: FDA-Public Use
  Company Number: CN-PFIZER INC-PV202300099053

PATIENT
  Age: 33 Year
  Sex: Male
  Weight: 110 kg

DRUGS (2)
  1. ZYVOX [Suspect]
     Active Substance: LINEZOLID
     Indication: Pneumonia
     Dosage: 0.6 G, 2X/DAY
     Route: 041
     Dates: start: 20230429, end: 20230501
  2. ZYVOX [Suspect]
     Active Substance: LINEZOLID
     Indication: Enterococcal infection

REACTIONS (1)
  - Pyrexia [Recovered/Resolved]

NARRATIVE: CASE EVENT DATE: 20230501
